FAERS Safety Report 4373219-6 (Version None)
Quarter: 2004Q2

REPORT INFORMATION
  Report Type: 
  Country: None (occurrence: None)
  Receive Date: 20040608
  Receipt Date: 20031223
  Transmission Date: 20050107
  Serious: Yes (Hospitalization)
  Sender: FDA-Public Use
  Company Number: US-GLAXOSMITHKLINE-A0494046A

PATIENT
  Age: 42 Year
  Sex: Female

DRUGS (12)
  1. LOTRONEX [Suspect]
     Dosage: 1MG TWICE PER DAY
     Route: 048
     Dates: start: 20000410, end: 20001030
  2. BLOCADREN [Concomitant]
  3. WELLBUTRIN [Concomitant]
  4. AMBIEN [Concomitant]
  5. MAXALT [Concomitant]
  6. ZANTAC [Concomitant]
  7. PREVACID [Concomitant]
  8. DEPO-PROVERA [Concomitant]
  9. IMITREX [Concomitant]
  10. ESGIC-PLUS [Concomitant]
  11. SKELAXIN [Concomitant]
  12. PHENERGAN [Concomitant]

REACTIONS (8)
  - ABDOMINAL PAIN UPPER [None]
  - ANOREXIA [None]
  - DEHYDRATION [None]
  - GASTRITIS [None]
  - IMPAIRED GASTRIC EMPTYING [None]
  - NAUSEA [None]
  - VOMITING [None]
  - WEIGHT DECREASED [None]
